FAERS Safety Report 7117889-8 (Version None)
Quarter: 2010Q4

REPORT INFORMATION
  Report Type: 
  Country: None (occurrence: None)
  Receive Date: 20101118
  Receipt Date: 20101118
  Transmission Date: 20110411
  Serious: Yes (Death)
  Sender: FDA-Public Use
  Company Number: None

PATIENT
  Age: 60 Year
  Sex: Male

DRUGS (10)
  1. REVLIMID [Suspect]
     Indication: MULTIPLE MYELOMA
     Dosage: 15MG DAILY ORALLY
     Route: 048
     Dates: start: 20090601, end: 20100101
  2. MORPHINE [Concomitant]
  3. TYLENOL (CAPLET) [Concomitant]
  4. LORAZEPAM [Concomitant]
  5. LASIX [Concomitant]
  6. PRILOSEC [Concomitant]
  7. PROZAC [Concomitant]
  8. ATENOLOL [Concomitant]
  9. FLONASE [Concomitant]
  10. COLASE [Concomitant]

REACTIONS (1)
  - THERAPY CESSATION [None]
